FAERS Safety Report 6572651-X (Version None)
Quarter: 2010Q1

REPORT INFORMATION
  Report Type: 
  Country: None (occurrence: None)
  Receive Date: 20100205
  Receipt Date: 20100112
  Transmission Date: 20100710
  Serious: Yes (Other)
  Sender: FDA-Public Use
  Company Number: NO-GENENTECH-297667

PATIENT
  Sex: Female

DRUGS (2)
  1. RITUXIMAB [Suspect]
     Indication: RHEUMATOID ARTHRITIS
     Dosage: UNK
     Route: 065
     Dates: start: 20080101
  2. RITUXIMAB [Suspect]
     Dosage: UNK
     Route: 065
     Dates: start: 20090601

REACTIONS (1)
  - MACULAR HOLE [None]
